FAERS Safety Report 20834226 (Version 1)
Quarter: 2022Q2

REPORT INFORMATION
  Report Type: 
  Country: None (occurrence: None)
  Receive Date: 20220516
  Receipt Date: 20220516
  Transmission Date: 20220721
  Serious: No
  Sender: FDA-Public Use
  Company Number: DE-ROCHE-2716315

PATIENT
  Weight: 60 kg

DRUGS (3)
  1. ATEZOLIZUMAB [Suspect]
     Active Substance: ATEZOLIZUMAB
     Dosage: MOST RECENT DOSE: 12/NOV/2020?ON DAY 1 AND DAY 15
     Dates: start: 20201112
  2. BEVACIZUMAB [Suspect]
     Active Substance: BEVACIZUMAB
     Dosage: MOST RECENT DOSE 12/NOV/2020?ON DAY1 AND DAY 15
     Dates: start: 20201112
  3. DOXORUBICIN [Suspect]
     Active Substance: DOXORUBICIN
     Dosage: ON 12/NOV/2020, RECEIVED MOST RECENT DOSE?ON DAY 1 AND DAY 29
     Dates: start: 20201112

REACTIONS (1)
  - Pyrexia [None]

NARRATIVE: CASE EVENT DATE: 20201114
